FAERS Safety Report 16008895 (Version 1)
Quarter: 2019Q1

REPORT INFORMATION
  Report Type: Spontaneous
  Country: GB (occurrence: NL)
  Receive Date: 20190226
  Receipt Date: 20190226
  Transmission Date: 20190418
  Serious: Yes (Other)
  Sender: FDA-Public Use
  Company Number: NL-FRESENIUS KABI-FK201901950

PATIENT
  Age: 6 Week
  Sex: Male
  Weight: 4 kg

DRUGS (3)
  1. OCTREOTIDE INJECTION (MANUFACTURER UNKNOWN) [Suspect]
     Active Substance: OCTREOTIDE
     Indication: CHYLOTHORAX
     Dosage: 10 MG/KG/HOUR AND LATER IN SEVERAL STEPS DECREASED UNTIL STOP
     Route: 065
     Dates: start: 20180222, end: 20180319
  2. GLUCOSE/POTASSIUM ACETATE/SODIUM ACETATE/SODIUM CHLORIDE/SODIUM PHOSPHATE MONOBASIC [Concomitant]
     Indication: PRODUCT USED FOR UNKNOWN INDICATION
     Route: 065
  3. MORPHINE [Concomitant]
     Active Substance: MORPHINE
     Indication: PRODUCT USED FOR UNKNOWN INDICATION
     Route: 065

REACTIONS (3)
  - Necrotising colitis [Recovering/Resolving]
  - Product use in unapproved indication [Unknown]
  - Product use issue [Unknown]

NARRATIVE: CASE EVENT DATE: 20180316
